FAERS Safety Report 8062209 (Version 2)
Quarter: 2013Q1

REPORT INFORMATION
  Report Type: Spontaneous
  Country: CA (occurrence: CA)
  Receive Date: 20110801
  Receipt Date: 20130301
  Transmission Date: 20140127
  Serious: Yes (Hospitalization)
  Sender: FDA-Public Use
  Company Number: CA-JNJFOC-20110709356

PATIENT
  Age: 52 Year
  Sex: Male
  Weight: 85 kg

DRUGS (9)
  1. REMICADE [Suspect]
     Indication: CROHN^S DISEASE
     Dosage: 22ND INFUSION
     Route: 042
     Dates: start: 20130104
  2. REMICADE [Suspect]
     Indication: CROHN^S DISEASE
     Route: 042
     Dates: start: 20110720
  3. REMICADE [Suspect]
     Indication: CROHN^S DISEASE
     Route: 042
     Dates: start: 20110601
  4. REMICADE [Suspect]
     Indication: CROHN^S DISEASE
     Route: 042
     Dates: start: 20100329
  5. VITAMIN B [Concomitant]
     Route: 050
  6. TUMS [Concomitant]
  7. QUESTRAN [Concomitant]
  8. SULFASALAZINE [Concomitant]
     Route: 048
  9. VITAMIN B12 [Concomitant]
     Route: 065

REACTIONS (1)
  - Nephrolithiasis [Recovered/Resolved]
